FAERS Safety Report 6674110-2 (Version None)
Quarter: 2010Q2

REPORT INFORMATION
  Report Type: 
  Country: None (occurrence: None)
  Receive Date: 20100409
  Receipt Date: 20100405
  Transmission Date: 20101027
  Serious: Yes (Other)
  Sender: FDA-Public Use
  Company Number: RU-BRISTOL-MYERS SQUIBB COMPANY-15050198

PATIENT
  Age: 74 Year
  Sex: Male

DRUGS (4)
  1. APROVEL TABS [Suspect]
     Route: 048
  2. ATORIS [Suspect]
  3. PROPANORM [Concomitant]
     Dates: start: 20070101
  4. ASPIRIN [Concomitant]
     Dates: start: 20000101

REACTIONS (2)
  - ANGIOEDEMA [None]
  - PRURITUS [None]
